FAERS Safety Report 25142950 (Version 1)
Quarter: 2025Q2

REPORT INFORMATION
  Report Type: Spontaneous
  Country: US (occurrence: US)
  Receive Date: 20250401
  Receipt Date: 20250401
  Transmission Date: 20250717
  Serious: Yes (Other)
  Sender: BRISTOL MYERS SQUIBB
  Company Number: US-BRISTOL-MYERS SQUIBB COMPANY-2025-046567

PATIENT
  Age: 48 Year
  Sex: Female

DRUGS (1)
  1. REVLIMID [Suspect]
     Active Substance: LENALIDOMIDE
     Indication: Myelodysplastic syndrome
     Dosage: PATIENT TOOK MEDICATION FOR 5 DAYS ON THEN 9 DAYS OFF, THEN REPEATED CYCLE.
     Route: 048
     Dates: start: 202301

REACTIONS (1)
  - Myelodysplastic syndrome [Unknown]
